FAERS Safety Report 8888169 (Version 1)
Quarter: 2012Q4

REPORT INFORMATION
  Report Type: 
  Country: US (occurrence: US)
  Receive Date: 20121106
  Receipt Date: 20121106
  Transmission Date: 20130627
  Serious: No
  Sender: FDA-Public Use
  Company Number: US-VERTEX PHARMACEUTICAL INC.-2012-024065

PATIENT
  Sex: Male
  Weight: 65.8 kg

DRUGS (10)
  1. TELAPREVIR [Suspect]
     Indication: HEPATITIS C
     Dosage: 750 mg, tid
     Route: 048
     Dates: start: 2012
  2. PEGASYS [Concomitant]
     Indication: HEPATITIS C
     Dosage: 180 ?g, weekly
     Route: 058
     Dates: start: 2012
  3. RIBASPHERE [Concomitant]
     Indication: HEPATITIS C
     Dosage: 3 DF, bid
     Dates: start: 2012
  4. ATRIPLA [Concomitant]
  5. CENTRUM                            /00554501/ [Concomitant]
     Dosage: UNK, qd
  6. ALLEGRA [Concomitant]
     Dosage: UNK, qd
  7. CEFDINIR [Concomitant]
     Dosage: UNK, bid
  8. VITAMIN C                          /00008001/ [Concomitant]
  9. FERROUS SULFATE [Concomitant]
  10. FISH OIL [Concomitant]

REACTIONS (1)
  - Fatigue [Unknown]
